FAERS Safety Report 9394408 (Version 3)
Quarter: 2013Q3

REPORT INFORMATION
  Report Type: Spontaneous
  Country: US (occurrence: US)
  Receive Date: 20130711
  Receipt Date: 20130724
  Transmission Date: 20140515
  Serious: Yes (Hospitalization)
  Sender: FDA-Public Use
  Company Number: US-JNJFOC-20130618872

PATIENT
  Age: 78 Year
  Sex: Female
  Weight: 99.79 kg

DRUGS (18)
  1. XARELTO [Suspect]
     Indication: CEREBROVASCULAR ACCIDENT PROPHYLAXIS
     Route: 048
  2. XARELTO [Suspect]
     Indication: ATRIAL FIBRILLATION
     Route: 048
  3. ASPIRIN [Suspect]
     Indication: OSTEOARTHRITIS
     Route: 065
  4. ALPRAZOLAM [Concomitant]
     Route: 065
  5. ADVAIR [Concomitant]
     Dosage: 250/50 MCG
     Route: 065
  6. CARDIZEM [Concomitant]
     Dosage: 250/50 MCG
     Route: 065
  7. CHERATUSSIN [Concomitant]
     Dosage: 5-10 ML
     Route: 065
  8. FLUOXETINE [Concomitant]
     Route: 065
  9. HYDROCODONE/APAP [Concomitant]
     Dosage: 5/325 MG
     Route: 065
  10. HYDROCHLOROTHIAZIDE [Concomitant]
     Dosage: 5/325 MG
     Route: 065
  11. POLYETHYLENE GLYCOL [Concomitant]
     Dosage: 1 PACKET/DAY
     Route: 065
  12. POTASSIUM CHLORIDE [Concomitant]
     Route: 065
  13. SIMVASTATIN [Concomitant]
     Route: 065
  14. SINGULAIR [Concomitant]
     Route: 065
  15. SPIRIVA [Concomitant]
     Route: 055
  16. SPIRONOLACTONE [Concomitant]
     Route: 065
  17. VENTOLIN [Concomitant]
     Route: 065
  18. BUPROPION [Concomitant]
     Route: 065

REACTIONS (4)
  - Gastrointestinal haemorrhage [Unknown]
  - Haemoglobin decreased [Recovered/Resolved]
  - Dyspnoea [Recovered/Resolved]
  - Faeces discoloured [Recovered/Resolved]
